FAERS Safety Report 18702723 (Version 1)
Quarter: 2021Q1

REPORT INFORMATION
  Report Type: Spontaneous
  Country: US (occurrence: US)
  Receive Date: 20210105
  Receipt Date: 20210105
  Transmission Date: 20210419
  Serious: No
  Sender: FDA-Public Use
  Company Number: US-VERTEX PHARMACEUTICALS-2020-025545

PATIENT
  Sex: Male
  Weight: 83.9 kg

DRUGS (10)
  1. VITAMIN D3 [Concomitant]
     Active Substance: CHOLECALCIFEROL
     Dosage: 50 MICROGRAM TABLET
  2. TOBRAMYCIN. [Concomitant]
     Active Substance: TOBRAMYCIN
     Dosage: 300MG/5ML AMPULE
  3. AZITHROMYCIN ANHYDROUS. [Concomitant]
     Active Substance: AZITHROMYCIN ANHYDROUS
     Dosage: 250MG TABLET
  4. ZENPEP [Concomitant]
     Active Substance: PANCRELIPASE AMYLASE\PANCRELIPASE LIPASE\PANCRELIPASE PROTEASE
     Dosage: 10/32/42K CAPSULE
  5. FLONASE ALLERGY RELIEF [Concomitant]
     Active Substance: FLUTICASONE PROPIONATE
     Dosage: UNK
  6. PULMOZYME [Concomitant]
     Active Substance: DORNASE ALFA
     Dosage: 1MG/ML SOLUTION
  7. LORATADINE. [Concomitant]
     Active Substance: LORATADINE
     Dosage: 10MG TABLET
  8. ORKAMBI [Suspect]
     Active Substance: IVACAFTOR\LUMACAFTOR
     Indication: CYSTIC FIBROSIS
     Dosage: UNK UNK, BID
     Route: 048
  9. ZYRTEC [Concomitant]
     Active Substance: CETIRIZINE HYDROCHLORIDE
     Dosage: 10MG CAPSULE
  10. MONTELUKAST SODIUM. [Concomitant]
     Active Substance: MONTELUKAST SODIUM
     Dosage: 10MG TABLET

REACTIONS (1)
  - Depression [Unknown]
